FAERS Safety Report 13023428 (Version 1)
Quarter: 2016Q4

REPORT INFORMATION
  Report Type: Spontaneous
  Country: CA (occurrence: CA)
  Receive Date: 20161213
  Receipt Date: 20161213
  Transmission Date: 20170207
  Serious: Yes (Death, Hospitalization, Other)
  Sender: FDA-Public Use
  Company Number: CA-MYLANLABS-2016M1054696

PATIENT

DRUGS (2)
  1. CISPLATIN. [Concomitant]
     Active Substance: CISPLATIN
     Indication: NASOPHARYNGEAL CANCER
     Route: 065
  2. FLUOROURACIL. [Suspect]
     Active Substance: FLUOROURACIL
     Indication: NASOPHARYNGEAL CANCER
     Dosage: 24-FOLD OVER-INFUSION WAS ADMINISTERED AT A RATE OF 28.8ML/H WHICH WAS SUPPOSED TO BE 1.2ML/H
     Route: 050
     Dates: start: 2006

REACTIONS (6)
  - Pancytopenia [Fatal]
  - Accidental overdose [Fatal]
  - Multiple organ dysfunction syndrome [Fatal]
  - Mucosal inflammation [Fatal]
  - Incorrect drug administration rate [Fatal]
  - Circulatory collapse [Fatal]

NARRATIVE: CASE EVENT DATE: 200607
